FAERS Safety Report 21272021 (Version 1)
Quarter: 2022Q3

REPORT INFORMATION
  Report Type: Spontaneous
  Country: US (occurrence: US)
  Receive Date: 20220830
  Receipt Date: 20220830
  Transmission Date: 20221027
  Serious: Yes (Other)
  Sender: FDA-Public Use
  Company Number: US-AMERICAN REGENT INC-2022000827

PATIENT
  Sex: Female
  Weight: 64 kg

DRUGS (16)
  1. FERRIC CARBOXYMALTOSE [Suspect]
     Active Substance: FERRIC CARBOXYMALTOSE
     Indication: Iron deficiency anaemia
     Dosage: 750 MILLIGRAM IN 0.9% SODIUM CHLORIDE, SINGLE
     Route: 042
     Dates: start: 20190524, end: 20190524
  2. FERRIC CARBOXYMALTOSE [Suspect]
     Active Substance: FERRIC CARBOXYMALTOSE
     Dosage: 750 MILLIGRAM IN 0.9% SODIUM CHLORIDE, SINGLE
     Route: 042
     Dates: start: 20190606, end: 20190606
  3. FERRIC CARBOXYMALTOSE [Suspect]
     Active Substance: FERRIC CARBOXYMALTOSE
     Dosage: 750 MILLIGRAM IN 0.9% SODIUM CHLORIDE, SINGLE
     Route: 042
     Dates: start: 20200610, end: 20200610
  4. FERRIC CARBOXYMALTOSE [Suspect]
     Active Substance: FERRIC CARBOXYMALTOSE
     Dosage: 750 MILLIGRAM IN 0.9% SODIUM CHLORIDE, SINGLE
     Route: 042
     Dates: start: 20200617, end: 20200617
  5. FERRIC CARBOXYMALTOSE [Suspect]
     Active Substance: FERRIC CARBOXYMALTOSE
     Dosage: 750 MILLIGRAM IN 0.9% SODIUM CHLORIDE, SINGLE
     Route: 042
     Dates: start: 20200624, end: 20200624
  6. FERRIC CARBOXYMALTOSE [Suspect]
     Active Substance: FERRIC CARBOXYMALTOSE
     Dosage: 750 MILLIGRAM IN 0.9% SODIUM CHLORIDE, SINGLE
     Route: 042
     Dates: start: 20210507, end: 20210507
  7. FERRIC CARBOXYMALTOSE [Suspect]
     Active Substance: FERRIC CARBOXYMALTOSE
     Dosage: 750 MILLIGRAM IN 0.9% SODIUM CHLORIDE, SINGLE
     Route: 042
     Dates: start: 20210514, end: 20210514
  8. FERRIC CARBOXYMALTOSE [Suspect]
     Active Substance: FERRIC CARBOXYMALTOSE
     Dosage: 750 MILLIGRAM IN 0.9% SODIUM CHLORIDE, SINGLE
     Route: 042
     Dates: start: 20210521, end: 20210521
  9. NORCO [Concomitant]
     Active Substance: ACETAMINOPHEN\HYDROCODONE BITARTRATE
     Indication: Pain
     Dosage: 1-2 EVERY 6 HOURS, PRN
     Route: 048
     Dates: start: 20190501, end: 20210520
  10. NEURONTIN [Concomitant]
     Active Substance: GABAPENTIN
     Indication: Product used for unknown indication
     Dosage: 300 MILLIGRAM, TID
     Route: 048
     Dates: start: 20190611
  11. DICLOFENAC [Concomitant]
     Active Substance: DICLOFENAC
     Indication: Breakthrough pain
     Dosage: 75 MILLIGRAM, PRN
     Route: 048
     Dates: end: 20210520
  12. ULTRAM [Concomitant]
     Active Substance: TRAMADOL HYDROCHLORIDE
     Indication: Product used for unknown indication
     Dosage: 50 MILLIGRAM
     Route: 048
     Dates: start: 20200304, end: 20210520
  13. CLARITIN [Concomitant]
     Active Substance: LORATADINE
     Indication: Product used for unknown indication
     Dosage: 10 MILLIGRAM, QD
     Route: 048
     Dates: end: 20210520
  14. EMLA [Concomitant]
     Active Substance: LIDOCAINE\PRILOCAINE
     Indication: Product used for unknown indication
     Dosage: UNK
     Route: 061
     Dates: start: 20190625, end: 20201002
  15. MONISTAT 7 [Concomitant]
     Active Substance: MICONAZOLE NITRATE
     Indication: Product used for unknown indication
     Dosage: UNK, QD
     Route: 067
     Dates: start: 20190831, end: 20201002
  16. FLEXERIL [Concomitant]
     Active Substance: CYCLOBENZAPRINE HYDROCHLORIDE
     Indication: Muscle spasms
     Dosage: 10 MILLIGRAM, TID
     Route: 048
     Dates: end: 20201002

REACTIONS (1)
  - Hypophosphataemia [Unknown]
